FAERS Safety Report 7183557-X (Version None)
Quarter: 2010Q4

REPORT INFORMATION
  Report Type: 
  Country: None (occurrence: None)
  Receive Date: 20101222
  Receipt Date: 20101213
  Transmission Date: 20110411
  Serious: Yes (Other)
  Sender: FDA-Public Use
  Company Number: US-SANOFI-AVENTIS-2010SA075672

PATIENT
  Sex: Male
  Weight: 100 kg

DRUGS (5)
  1. ENOXAPARIN SODIUM [Suspect]
     Route: 058
  2. WARFARIN SODIUM [Concomitant]
  3. CLONAZEPAM [Concomitant]
  4. OXYCODONE [Concomitant]
  5. ADDERALL 10 [Concomitant]

REACTIONS (3)
  - COAGULATION TIME PROLONGED [None]
  - INTENTIONAL OVERDOSE [None]
  - INTERNATIONAL NORMALISED RATIO INCREASED [None]
